FAERS Safety Report 16074401 (Version 1)
Quarter: 2019Q1

REPORT INFORMATION
  Report Type: Spontaneous
  Country: US (occurrence: US)
  Receive Date: 20190314
  Receipt Date: 20190314
  Transmission Date: 20190418
  Serious: No
  Sender: FDA-Public Use
  Company Number: US-ALKERMES INC.-ALK-2019-001325

PATIENT
  Sex: Female

DRUGS (1)
  1. VIVITROL [Suspect]
     Active Substance: NALTREXONE
     Indication: PRODUCT USED FOR UNKNOWN INDICATION
     Dosage: 380 MG, QMO
     Route: 030
     Dates: start: 201810

REACTIONS (5)
  - Injection site papule [Not Recovered/Not Resolved]
  - Psoriasis [Unknown]
  - Injection site reaction [Not Recovered/Not Resolved]
  - Acne [Not Recovered/Not Resolved]
  - Injection site haemorrhage [Recovered/Resolved]
